FAERS Safety Report 25072341 (Version 6)
Quarter: 2025Q4

REPORT INFORMATION
  Report Type: Spontaneous
  Country: CA (occurrence: None)
  Receive Date: 20250313
  Receipt Date: 20251124
  Transmission Date: 20260118
  Serious: Yes (Death, Other)
  Sender: ORGANON
  Company Number: CA-ORGANON-O2503CAN000973

PATIENT
  Age: 34 Year
  Sex: Male

DRUGS (2)
  1. PROPECIA [Suspect]
     Active Substance: FINASTERIDE
     Indication: Alopecia
     Dosage: UNK
  2. KETAMINE [Suspect]
     Active Substance: KETAMINE
     Dosage: HE DID THREE SESSIONS
     Route: 065

REACTIONS (24)
  - Completed suicide [Fatal]
  - Suicidal ideation [Unknown]
  - Erectile dysfunction [Unknown]
  - Anxiety [Unknown]
  - Brain fog [Not Recovered/Not Resolved]
  - Fatigue [Unknown]
  - Malaise [Unknown]
  - Post 5-alpha-reductase inhibitor syndrome [Unknown]
  - Sexual dysfunction [Unknown]
  - Tinnitus [Unknown]
  - Joint noise [Unknown]
  - Panic attack [Not Recovered/Not Resolved]
  - Insomnia [Unknown]
  - Discomfort [Unknown]
  - Feeling jittery [Unknown]
  - Genital atrophy [Unknown]
  - Electric shock sensation [Unknown]
  - Muscle spasms [Unknown]
  - Restlessness [Unknown]
  - Crying [Unknown]
  - Lacrimation decreased [Unknown]
  - Anhedonia [Unknown]
  - Agitation [Unknown]
  - Feeling abnormal [Unknown]

NARRATIVE: CASE EVENT DATE: 20210101
